FAERS Safety Report 23430523 (Version 1)
Quarter: 2024Q1

REPORT INFORMATION
  Report Type: Spontaneous
  Country: US (occurrence: US)
  Receive Date: 20240123
  Receipt Date: 20240123
  Transmission Date: 20240410
  Serious: Yes (Hospitalization)
  Sender: FDA-Public Use
  Company Number: US-BRISTOL-MYERS SQUIBB COMPANY-2024-009807

PATIENT
  Age: 66 Year
  Sex: Female
  Weight: 51.26 kg

DRUGS (1)
  1. REVLIMID [Suspect]
     Active Substance: LENALIDOMIDE
     Indication: Plasma cell myeloma
     Dosage: 3 WEEK, 1 WEEK OFF
     Route: 048

REACTIONS (2)
  - COVID-19 [Unknown]
  - Pruritus [Unknown]
